FAERS Safety Report 7561847-6 (Version None)
Quarter: 2011Q2

REPORT INFORMATION
  Report Type: 
  Country: None (occurrence: None)
  Receive Date: 20110621
  Receipt Date: 20110608
  Transmission Date: 20111010
  Serious: Yes (Hospitalization, Other)
  Sender: FDA-Public Use
  Company Number: US-CELGENEUS-163-21880-10110952

PATIENT
  Sex: Female

DRUGS (26)
  1. ACYCLOVIR [Concomitant]
     Route: 065
  2. FISH OIL [Concomitant]
     Route: 065
  3. CALCIUM CARBONATE [Concomitant]
     Route: 065
  4. REGLAN [Concomitant]
     Route: 065
  5. DILAUDID [Concomitant]
     Route: 065
  6. M.V.I. [Concomitant]
     Route: 065
  7. SANCUSO [Concomitant]
     Route: 065
  8. LIALDO [Concomitant]
     Route: 065
  9. MAGNESIUM [Concomitant]
     Route: 065
  10. NEULASTA [Concomitant]
     Route: 065
  11. REVLIMID [Suspect]
     Dosage: 15 MILLIGRAM
     Route: 048
     Dates: start: 20110501
  12. ZOMETA [Concomitant]
     Route: 065
  13. FLUOROURACIL [Concomitant]
     Route: 065
  14. PROCRIT [Concomitant]
     Route: 065
  15. DEXAMETHASONE [Concomitant]
     Route: 065
  16. LEUCOVORIN CALCIUM [Concomitant]
     Route: 065
  17. REVLIMID [Suspect]
     Dosage: 10-15MG
     Route: 048
     Dates: start: 20110301
  18. AVELOX [Concomitant]
     Route: 065
  19. MARINOL [Concomitant]
     Route: 065
  20. FENTANYL-100 [Concomitant]
     Route: 065
  21. OXALIPLATIN [Concomitant]
     Route: 065
  22. REVLIMID [Suspect]
     Indication: MULTIPLE MYELOMA
     Dosage: 25 MILLIGRAM
     Route: 048
     Dates: start: 20101001
  23. BACTRIM [Concomitant]
     Route: 065
  24. ATIVAN [Concomitant]
     Route: 065
  25. VITAMIN D [Concomitant]
     Route: 065
  26. ASPIRIN [Concomitant]
     Route: 065

REACTIONS (4)
  - PANCREATITIS [None]
  - RED BLOOD CELL COUNT DECREASED [None]
  - PANCREATIC CARCINOMA [None]
  - WHITE BLOOD CELL COUNT DECREASED [None]
